FAERS Safety Report 6558423-0 (Version None)
Quarter: 2010Q1

REPORT INFORMATION
  Report Type: 
  Country: None (occurrence: None)
  Receive Date: 20100129
  Receipt Date: 20100120
  Transmission Date: 20100710
  Serious: Yes (Other)
  Sender: FDA-Public Use
  Company Number: US-JNJFOC-20100109388

PATIENT
  Sex: Male
  Weight: 117.94 kg

DRUGS (7)
  1. DURAGESIC-100 [Suspect]
     Indication: NEURALGIA
     Route: 062
  2. DURAGESIC-100 [Suspect]
     Route: 062
  3. DURAGESIC-100 [Suspect]
     Route: 062
  4. AREDIA [Suspect]
     Indication: MULTIPLE MYELOMA
     Route: 042
  5. COUMADIN [Concomitant]
     Indication: THROMBOSIS
     Route: 048
  6. COUMADIN [Concomitant]
     Route: 048
  7. GABAPENTIN [Concomitant]
     Indication: NEUROPATHY PERIPHERAL
     Route: 048

REACTIONS (6)
  - APPLICATION SITE RASH [None]
  - HERPES ZOSTER [None]
  - MALAISE [None]
  - OSTEOCHONDROSIS [None]
  - TOOTH LOSS [None]
  - WITHDRAWAL SYNDROME [None]
